FAERS Safety Report 21157219 (Version 1)
Quarter: 2022Q3

REPORT INFORMATION
  Report Type: Spontaneous
  Country: US (occurrence: US)
  Receive Date: 20220801
  Receipt Date: 20220801
  Transmission Date: 20221026
  Serious: Yes (Life-Threatening)
  Sender: FDA-Public Use
  Company Number: US-Merck Healthcare KGaA-9338819

PATIENT
  Age: 74 Year
  Sex: Male

DRUGS (1)
  1. CETUXIMAB [Suspect]
     Active Substance: CETUXIMAB
     Indication: Hypopharyngeal cancer
     Dosage: UNK, UNKNOWN
     Route: 065

REACTIONS (3)
  - Tracheal injury [Recovering/Resolving]
  - Toxic encephalopathy [Recovering/Resolving]
  - Streptococcal infection [Recovering/Resolving]
